FAERS Safety Report 10021526 (Version 2)
Quarter: 2014Q1

REPORT INFORMATION
  Report Type: Spontaneous
  Country: IN (occurrence: IN)
  Receive Date: 20140319
  Receipt Date: 20140319
  Transmission Date: 20141002
  Serious: Yes (Death)
  Sender: FDA-Public Use
  Company Number: IN-PFIZER INC-2014074569

PATIENT
  Age: 16 Month
  Sex: Female
  Weight: 8 kg

DRUGS (3)
  1. PIPERACILLIN/TAZOBACTAM [Suspect]
     Indication: EVIDENCE BASED TREATMENT
     Dosage: UNK
     Route: 042
  2. NETILMICIN [Suspect]
     Indication: EVIDENCE BASED TREATMENT
     Dosage: UNK
     Route: 042
  3. MEROPENEM [Suspect]
     Indication: BURKHOLDERIA PSEUDOMALLEI INFECTION
     Dosage: UNK
     Route: 042

REACTIONS (1)
  - Drug ineffective [Fatal]
